FAERS Safety Report 13419012 (Version 2)
Quarter: 2017Q4

REPORT INFORMATION
  Report Type: Spontaneous
  Country: US (occurrence: US)
  Receive Date: 20170407
  Receipt Date: 20171123
  Transmission Date: 20180320
  Serious: No
  Sender: FDA-Public Use
  Company Number: US-JNJFOC-20170319821

PATIENT
  Sex: Male

DRUGS (6)
  1. RISPERIDONE. [Suspect]
     Active Substance: RISPERIDONE
     Indication: SEVERE MENTAL RETARDATION
     Route: 048
     Dates: start: 20090228, end: 20140702
  2. RISPERIDONE. [Suspect]
     Active Substance: RISPERIDONE
     Indication: ABNORMAL BEHAVIOUR
     Route: 048
     Dates: start: 20090228, end: 20140702
  3. RISPERDAL [Suspect]
     Active Substance: RISPERIDONE
     Indication: ABNORMAL BEHAVIOUR
     Route: 048
     Dates: start: 20050725, end: 20090129
  4. RISPERDAL [Suspect]
     Active Substance: RISPERIDONE
     Indication: SEVERE MENTAL RETARDATION
     Route: 048
     Dates: start: 20050725, end: 20090129
  5. RISPERIDONE. [Suspect]
     Active Substance: RISPERIDONE
     Indication: SEVERE MENTAL RETARDATION
     Route: 048
     Dates: start: 20090430
  6. RISPERIDONE. [Suspect]
     Active Substance: RISPERIDONE
     Indication: ABNORMAL BEHAVIOUR
     Route: 048
     Dates: start: 20090430

REACTIONS (2)
  - Gynaecomastia [Unknown]
  - Emotional disorder [Unknown]
